FAERS Safety Report 4663139-1 (Version None)
Quarter: 2005Q2

REPORT INFORMATION
  Report Type: 
  Country: None (occurrence: None)
  Receive Date: 20050513
  Receipt Date: 20050506
  Transmission Date: 20051028
  Serious: Yes (Hospitalization)
  Sender: FDA-Public Use
  Company Number: 2005050601548

PATIENT
  Age: 61 Year
  Sex: Female

DRUGS (3)
  1. MONISTAT 7 [Suspect]
     Indication: FUNGAL INFECTION
     Dosage: 100 MG, 7, VAGINAL
     Route: 067
     Dates: start: 20050414, end: 20050420
  2. PREMARIN [Concomitant]
  3. COUMADIN [Concomitant]

REACTIONS (4)
  - CONTUSION [None]
  - EYE INJURY [None]
  - INTERNATIONAL NORMALISED RATIO INCREASED [None]
  - OEDEMA PERIPHERAL [None]
